FAERS Safety Report 11574798 (Version 2)
Quarter: 2015Q4

REPORT INFORMATION
  Report Type: Spontaneous
  Country: US (occurrence: US)
  Receive Date: 20150916
  Receipt Date: 20151104
  Transmission Date: 20160304
  Serious: No
  Sender: FDA-Public Use
  Company Number: US-ELI_LILLY_AND_COMPANY-US200911002946

PATIENT
  Sex: Female

DRUGS (1)
  1. FORTEO [Suspect]
     Active Substance: TERIPARATIDE
     Indication: OSTEOPOROSIS
     Dosage: 20 UG, DAILY (1/D)
     Dates: start: 200910

REACTIONS (6)
  - Oropharyngeal pain [Unknown]
  - Chest discomfort [Unknown]
  - Decreased appetite [Unknown]
  - Malaise [Unknown]
  - Heart rate increased [Unknown]
  - Neck pain [Unknown]

NARRATIVE: CASE EVENT DATE: 2009
